FAERS Safety Report 9380615 (Version 3)
Quarter: 2013Q3

REPORT INFORMATION
  Report Type: Spontaneous
  Country: US (occurrence: None)
  Receive Date: 20130628
  Receipt Date: 20130705
  Transmission Date: 20140515
  Serious: Yes (Death, Hospitalization)
  Sender: FDA-Public Use
  Company Number: USA/USA/13/0030243

PATIENT
  Age: 81 Year
  Sex: Female
  Weight: 51.71 kg

DRUGS (10)
  1. AUGMENTIN [Suspect]
     Indication: PRODUCT USED FOR UNKNOWN INDICATION
  2. JAKAFI [Suspect]
     Indication: MYELOFIBROSIS
     Route: 048
  3. ZOLPIDEM [Concomitant]
  4. LASIX(FUROSEMIDE) [Concomitant]
  5. IMDUR(ISOSORBIDE MONONITRATE) [Concomitant]
  6. LEVOTHYROXINE(LEVOTHYROXINE) [Concomitant]
  7. LOPRESSOR(METOPROLOL TARTRATE) [Concomitant]
  8. LOMOTIL(LOMOTIL) [Concomitant]
  9. MIRTAZAPINE(MIRTAZAPINE) [Concomitant]
  10. ZOFRAN(ONDANSETRON) [Concomitant]

REACTIONS (4)
  - Pneumonia [None]
  - Iron deficiency anaemia [None]
  - Diarrhoea [None]
  - Haemoglobin decreased [None]
